FAERS Safety Report 6922923-1 (Version None)
Quarter: 2010Q3

REPORT INFORMATION
  Report Type: 
  Country: None (occurrence: None)
  Receive Date: 20100813
  Receipt Date: 20100802
  Transmission Date: 20110219
  Serious: Yes (Other)
  Sender: FDA-Public Use
  Company Number: PHHY2010SE52135

PATIENT
  Age: 34 Year
  Sex: Female

DRUGS (4)
  1. VOLTAREN [Suspect]
     Indication: CLUSTER HEADACHE
     Dosage: UNK
  2. ALVEDON [Concomitant]
     Indication: PAIN
     Dosage: 27 ALVEDON
  3. NAPROXEN [Concomitant]
     Indication: PAIN
     Dosage: 12 NAPROXEN
  4. TRADOLAN [Concomitant]
     Indication: PAIN
     Dosage: 3 TRADOLAN

REACTIONS (4)
  - DRUG ABUSE [None]
  - DRUG DETOXIFICATION [None]
  - MIGRAINE [None]
  - OVERDOSE [None]
